FAERS Safety Report 12074643 (Version 1)
Quarter: 2016Q1

REPORT INFORMATION
  Report Type: Spontaneous
  Country: US (occurrence: US)
  Receive Date: 20160212
  Receipt Date: 20160212
  Transmission Date: 20160526
  Serious: Yes (Death, Life-Threatening, Hospitalization)
  Sender: FDA-Public Use
  Company Number: US-ROXANE LABORATORIES, INC.-2016-RO-00226RO

PATIENT
  Age: 23 Year
  Sex: Female

DRUGS (1)
  1. PREDNISONE TABLETS USP, 5MG [Suspect]
     Active Substance: PREDNISONE
     Indication: LUPUS NEPHRITIS
     Route: 065

REACTIONS (4)
  - Respiratory failure [Unknown]
  - Rhinovirus infection [Fatal]
  - Acute respiratory distress syndrome [Unknown]
  - Coccidioidomycosis [Fatal]
